FAERS Safety Report 5596573-6 (Version None)
Quarter: 2007Q4

REPORT INFORMATION
  Report Type: 
  Country: None (occurrence: None)
  Receive Date: 20071219
  Receipt Date: 20070921
  Transmission Date: 20080405
  Serious: No
  Sender: FDA-Public Use
  Company Number: HQWYE315925SEP07

PATIENT
  Sex: Female

DRUGS (2)
  1. TORISEL [Suspect]
     Indication: RENAL CELL CARCINOMA STAGE UNSPECIFIED
     Dosage: 23-25 MG ONCE, INTRAVENOUS
     Route: 042
  2. BENADRYL [Concomitant]

REACTIONS (1)
  - RASH [None]
